FAERS Safety Report 21322225 (Version 3)
Quarter: 2022Q4

REPORT INFORMATION
  Report Type: Spontaneous
  Country: US (occurrence: US)
  Receive Date: 20220912
  Receipt Date: 20221004
  Transmission Date: 20230113
  Serious: No
  Sender: FDA-Public Use
  Company Number: US-GLAXOSMITHKLINE-US2022AMR130561

PATIENT
  Sex: Female

DRUGS (1)
  1. ZEJULA [Suspect]
     Active Substance: NIRAPARIB
     Indication: Drug therapy
     Dosage: 300 MG, QD

REACTIONS (4)
  - Platelet count decreased [Not Recovered/Not Resolved]
  - Hypertension [Unknown]
  - Dyspepsia [Unknown]
  - Constipation [Unknown]
